FAERS Safety Report 11472927 (Version 1)
Quarter: 2015Q3

REPORT INFORMATION
  Report Type: Spontaneous
  Country: US (occurrence: US)
  Receive Date: 20150908
  Receipt Date: 20150908
  Transmission Date: 20151125
  Serious: Yes (Other)
  Sender: FDA-Public Use
  Company Number: US-JAZZ-2013-US-001950

PATIENT
  Sex: Male

DRUGS (4)
  1. XYREM [Suspect]
     Active Substance: SODIUM OXYBATE
     Dosage: 4.5 G,BID
     Route: 048
     Dates: start: 201305, end: 20131004
  2. XYREM [Suspect]
     Active Substance: SODIUM OXYBATE
     Indication: CATAPLEXY
     Dosage: 1.5 G, BID
     Route: 048
     Dates: start: 201209, end: 201211
  3. XYREM [Suspect]
     Active Substance: SODIUM OXYBATE
     Dosage: 3 G,BID
     Route: 048
     Dates: start: 201301, end: 201305
  4. XYREM [Suspect]
     Active Substance: SODIUM OXYBATE
     Indication: NARCOLEPSY
     Dosage: 2.25 G,BID
     Route: 048
     Dates: start: 201211, end: 201301

REACTIONS (4)
  - Panic reaction [Recovered/Resolved]
  - Depressed mood [Recovering/Resolving]
  - Vision blurred [Recovered/Resolved]
  - Blood urine present [Recovering/Resolving]

NARRATIVE: CASE EVENT DATE: 2013
